FAERS Safety Report 6175580-9 (Version None)
Quarter: 2009Q2

REPORT INFORMATION
  Report Type: 
  Country: None (occurrence: None)
  Receive Date: 20090501
  Receipt Date: 20090424
  Transmission Date: 20091009
  Serious: Yes (Other)
  Sender: FDA-Public Use
  Company Number: SE-JNJFOC-20090406000

PATIENT
  Age: 19 Year
  Sex: Female

DRUGS (2)
  1. CONCERTA [Suspect]
     Indication: DRUG USE FOR UNKNOWN INDICATION
     Dosage: INITIATED SINCE 2 WEEKS AGO
     Route: 048
  2. LERGIGAN [Concomitant]
     Route: 065

REACTIONS (1)
  - PLATELET COUNT INCREASED [None]
